FAERS Safety Report 17562206 (Version 3)
Quarter: 2021Q1

REPORT INFORMATION
  Report Type: Report from Study
  Country: US (occurrence: US)
  Receive Date: 20200319
  Receipt Date: 20210316
  Transmission Date: 20210419
  Serious: Yes (Death, Life-Threatening, Other)
  Sender: FDA-Public Use
  Company Number: NVSC2020US077171

PATIENT
  Age: 5 Year
  Sex: Male

DRUGS (3)
  1. KYMRIAH [Suspect]
     Active Substance: TISAGENLECLEUCEL
     Indication: B-CELL TYPE ACUTE LEUKAEMIA
     Dosage: UNK, ONCE/SINGLE
     Route: 041
     Dates: start: 20181228
  2. CYCLOPHOSPHAMIDE. [Concomitant]
     Active Substance: CYCLOPHOSPHAMIDE
     Indication: CHEMOTHERAPY
     Dosage: UNK
     Route: 065
  3. FLUDARABINE [Concomitant]
     Active Substance: FLUDARABINE PHOSPHATE
     Indication: CHEMOTHERAPY
     Dosage: UNK
     Route: 065

REACTIONS (15)
  - Multiple organ dysfunction syndrome [Fatal]
  - Enterococcal infection [Fatal]
  - Serratia infection [Fatal]
  - Platelet count decreased [Recovered/Resolved]
  - Klebsiella infection [Fatal]
  - Staphylococcal infection [Unknown]
  - Neutrophil count decreased [Recovered/Resolved]
  - Bacterial infection [Unknown]
  - Haematocrit decreased [Unknown]
  - Haemoglobin decreased [Unknown]
  - Lymphocyte count decreased [Unknown]
  - Hypogammaglobulinaemia [Not Recovered/Not Resolved]
  - Graft versus host disease [Fatal]
  - Cellulitis [Unknown]
  - White blood cell count decreased [Unknown]
